FAERS Safety Report 20475995 (Version 6)
Quarter: 2022Q2

REPORT INFORMATION
  Report Type: Spontaneous
  Country: JP (occurrence: None)
  Receive Date: 20220215
  Receipt Date: 20220602
  Transmission Date: 20220721
  Serious: Yes (Hospitalization)
  Sender: FDA-Public Use
  Company Number: 2022A058143

PATIENT
  Age: 76 Year
  Sex: Female

DRUGS (12)
  1. TAGRISSO [Suspect]
     Active Substance: OSIMERTINIB
     Indication: Non-small cell lung cancer
     Dosage: 80 MG, 3 OR 4 TIMES PER WEEK
     Route: 048
     Dates: start: 2019, end: 20220128
  2. TAGRISSO [Suspect]
     Active Substance: OSIMERTINIB
     Indication: Non-small cell lung cancer
     Route: 048
     Dates: start: 20190404
  3. TAGRISSO [Suspect]
     Active Substance: OSIMERTINIB
     Indication: Non-small cell lung cancer
     Route: 048
     Dates: start: 201907
  4. TAGRISSO [Suspect]
     Active Substance: OSIMERTINIB
     Indication: Non-small cell lung cancer
     Route: 048
     Dates: start: 201907
  5. TAGRISSO [Suspect]
     Active Substance: OSIMERTINIB
     Indication: Non-small cell lung cancer
     Route: 048
     Dates: start: 20201126
  6. TAGRISSO [Suspect]
     Active Substance: OSIMERTINIB
     Indication: Non-small cell lung cancer
     Route: 048
     Dates: start: 202101
  7. TAGRISSO [Suspect]
     Active Substance: OSIMERTINIB
     Indication: Non-small cell lung cancer
     Route: 048
     Dates: start: 20220112
  8. IRESSA [Suspect]
     Active Substance: GEFITINIB
     Indication: Non-small cell lung cancer
     Route: 048
  9. DIETARY SUPPLEMENT\PROBIOTICS [Concomitant]
     Active Substance: DIETARY SUPPLEMENT\PROBIOTICS
  10. CLOBETASOL [Concomitant]
     Active Substance: CLOBETASOL
  11. RINDERON V [Concomitant]
     Active Substance: BETAMETHASONE VALERATE
  12. TRAVELMIN [Concomitant]

REACTIONS (12)
  - Myocardial ischaemia [Not Recovered/Not Resolved]
  - Cardiac failure [Recovering/Resolving]
  - Cardiac dysfunction [Recovering/Resolving]
  - Hepatic function abnormal [Unknown]
  - Cutaneous symptom [Unknown]
  - Radiation pneumonitis [Unknown]
  - Loss of consciousness [Unknown]
  - Cardiomyopathy [Unknown]
  - Coronary artery stenosis [Unknown]
  - Diarrhoea [Recovering/Resolving]
  - Dermatitis [Recovering/Resolving]
  - Off label use [Unknown]

NARRATIVE: CASE EVENT DATE: 20190404
